FAERS Safety Report 4396481-2 (Version None)
Quarter: 2004Q3

REPORT INFORMATION
  Report Type: 
  Country: None (occurrence: None)
  Receive Date: 20040709
  Receipt Date: 20040625
  Transmission Date: 20050211
  Serious: Yes (Other)
  Sender: FDA-Public Use
  Company Number: FR-JNJFOC-20040700161

PATIENT

DRUGS (1)
  1. ABCIXIMAB (ABCIXIMAB) INJECTION [Suspect]
     Indication: ACUTE MYOCARDIAL INFARCTION
     Dosage: 0.25 MG/KG, 1 IN 1 TOTAL, INTRAVENOUS (SEE IMAGE)
     Route: 042

REACTIONS (4)
  - CARDIOVASCULAR DISORDER [None]
  - ISCHAEMIA [None]
  - MYOCARDIAL INFARCTION [None]
  - VESSEL PUNCTURE SITE HAEMORRHAGE [None]
